FAERS Safety Report 7068665-6 (Version None)
Quarter: 2010Q4

REPORT INFORMATION
  Report Type: 
  Country: None (occurrence: None)
  Receive Date: 20101028
  Receipt Date: 20101026
  Transmission Date: 20110411
  Serious: Yes (Hospitalization, Other)
  Sender: FDA-Public Use
  Company Number: US-BRISTOL-MYERS SQUIBB COMPANY-15309727

PATIENT
  Age: 67 Year
  Sex: Male

DRUGS (3)
  1. VIDEX [Suspect]
     Indication: ANTIRETROVIRAL THERAPY
  2. KALETRA [Concomitant]
  3. METFORMIN [Concomitant]

REACTIONS (2)
  - HEPATIC FAILURE [None]
  - RENAL FAILURE [None]
